FAERS Safety Report 18840083 (Version 1)
Quarter: 2021Q1

REPORT INFORMATION
  Report Type: Spontaneous
  Country: JP (occurrence: JP)
  Receive Date: 20210204
  Receipt Date: 20210204
  Transmission Date: 20210419
  Serious: Yes (Hospitalization)
  Sender: FDA-Public Use
  Company Number: JP-TEVA-2021-JP-000461J

PATIENT
  Age: 74 Year
  Sex: Female

DRUGS (6)
  1. HEMOPORISON [Concomitant]
     Route: 065
  2. ROSUVASTATIN. [Concomitant]
     Active Substance: ROSUVASTATIN
     Dosage: 1 DOSAGE FORMS DAILY;
     Route: 065
  3. ALENDRONATE [Concomitant]
     Active Substance: ALENDRONATE SODIUM
     Route: 065
  4. SALAZOSULFAPYRIDINE TABLET 500MG ^TAIYO^ [Suspect]
     Active Substance: SULFASALAZINE
     Indication: COLITIS ISCHAEMIC
     Dosage: 8000 MILLIGRAM DAILY;
     Route: 048
     Dates: start: 20201015, end: 20201210
  5. CAMSHIA [Concomitant]
     Active Substance: AMLODIPINE BESYLATE\CANDESARTAN CILEXETIL
     Dosage: 1 DOSAGE FORMS DAILY;
     Route: 065
  6. MIYA?BM [Concomitant]
     Active Substance: CLOSTRIDIUM BUTYRICUM SPORES STRAIN M-55
     Dosage: 6 DOSAGE FORMS DAILY;
     Route: 065

REACTIONS (4)
  - Pyrexia [Unknown]
  - Pancytopenia [Recovered/Resolved]
  - Oropharyngeal pain [Unknown]
  - Constipation [Unknown]

NARRATIVE: CASE EVENT DATE: 202011
